FAERS Safety Report 19476178 (Version 2)
Quarter: 2022Q3

REPORT INFORMATION
  Report Type: Spontaneous
  Country: DE (occurrence: DE)
  Receive Date: 20210630
  Receipt Date: 20220713
  Transmission Date: 20221027
  Serious: Yes (Other)
  Sender: FDA-Public Use
  Company Number: DE-GSKCCFEMEA-CASE-01245515_AE-46386

PATIENT

DRUGS (1)
  1. DUTASTERIDE\TAMSULOSIN [Suspect]
     Active Substance: DUTASTERIDE\TAMSULOSIN
     Indication: Product used for unknown indication
     Dosage: UNK

REACTIONS (3)
  - Paralysis [Unknown]
  - General physical health deterioration [Unknown]
  - Product use complaint [Unknown]
